FAERS Safety Report 5674557-7 (Version None)
Quarter: 2008Q1

REPORT INFORMATION
  Report Type: 
  Country: None (occurrence: None)
  Receive Date: 20080320
  Receipt Date: 20060517
  Transmission Date: 20080703
  Serious: Yes (Life-Threatening, Hospitalization)
  Sender: FDA-Public Use
  Company Number: US-JNJFOC-20060503263

PATIENT
  Sex: Male
  Weight: 58.06 kg

DRUGS (9)
  1. TMC114 [Suspect]
     Route: 048
  2. TMC114 [Suspect]
     Indication: HIV INFECTION
     Route: 048
  3. NORVIR [Suspect]
     Indication: HIV INFECTION
     Route: 048
  4. TRUVADA [Concomitant]
     Indication: HIV INFECTION
     Dosage: 300/200MG
     Route: 048
  5. DAPSONE [Concomitant]
     Indication: ANTIFUNGAL PROPHYLAXIS
     Dosage: STARTED PRE-TRIAL
     Route: 048
  6. LORATADINE [Concomitant]
     Indication: SEASONAL ALLERGY
     Route: 048
  7. MAGIC MOUTH WASH [Concomitant]
     Indication: PHARYNGOLARYNGEAL PAIN
     Dosage: SWISH AND SWALLOW
     Route: 048
  8. CARNATION I/B [Concomitant]
     Dosage: DRINK ONE CAN
     Route: 048
  9. AUGMENTIN '125' [Concomitant]
     Indication: PHARYNGOLARYNGEAL PAIN
     Route: 048

REACTIONS (1)
  - STEVENS-JOHNSON SYNDROME [None]
